FAERS Safety Report 18467794 (Version 2)
Quarter: 2020Q4

REPORT INFORMATION
  Report Type: Spontaneous
  Country: JP (occurrence: JP)
  Receive Date: 20201105
  Receipt Date: 20201123
  Transmission Date: 20210114
  Serious: No
  Sender: FDA-Public Use
  Company Number: JP-JNJFOC-20201050867

PATIENT
  Age: 62 Year
  Sex: Male

DRUGS (6)
  1. STELARA [Suspect]
     Active Substance: USTEKINUMAB
     Indication: CROHN^S DISEASE
     Route: 042
     Dates: start: 20200616, end: 20200616
  2. ELENTAL [Concomitant]
     Active Substance: AMINO ACIDS\CARBOHYDRATES\MINERALS\SOYBEAN OIL\VITAMINS
     Dosage: DOSE UNKNOWN
     Route: 048
     Dates: start: 20200420
  3. PENTASA [Concomitant]
     Active Substance: MESALAMINE
     Dosage: DOSE UNKNOWN
     Route: 065
     Dates: start: 20200420
  4. STELARA [Suspect]
     Active Substance: USTEKINUMAB
     Route: 058
     Dates: start: 20200811, end: 20200811
  5. STELARA [Suspect]
     Active Substance: USTEKINUMAB
     Route: 058
     Dates: start: 20201027
  6. ISCOTIN [Concomitant]
     Active Substance: ISONIAZID
     Dosage: DOSE UNKNOWN
     Route: 065
     Dates: start: 20200609

REACTIONS (1)
  - Hepatic function abnormal [Recovered/Resolved]

NARRATIVE: CASE EVENT DATE: 20200930
